FAERS Safety Report 5819536-1 (Version None)
Quarter: 2008Q3

REPORT INFORMATION
  Report Type: 
  Country: None (occurrence: None)
  Receive Date: 20080723
  Receipt Date: 20080708
  Transmission Date: 20090109
  Serious: Yes (Hospitalization)
  Sender: FDA-Public Use
  Company Number: CH-GENENTECH-264715

PATIENT
  Sex: Female

DRUGS (1)
  1. RITUXIMAB [Suspect]
     Indication: B-CELL LYMPHOMA
     Dosage: 575 MG, 1/MONTH
     Route: 042
     Dates: start: 20051229

REACTIONS (2)
  - GROIN PAIN [None]
  - VENOUS THROMBOSIS [None]
